FAERS Safety Report 10481766 (Version 2)
Quarter: 2014Q3

REPORT INFORMATION
  Report Type: Spontaneous
  Country: BR (occurrence: BR)
  Receive Date: 20140929
  Receipt Date: 20140929
  Transmission Date: 20150326
  Serious: Yes (Other)
  Sender: FDA-Public Use
  Company Number: BR-PFIZER INC-2014253172

PATIENT
  Age: 67 Year
  Sex: Female
  Weight: 69 kg

DRUGS (10)
  1. CELEBRA [Suspect]
     Active Substance: CELECOXIB
     Indication: PAIN
     Dosage: 1 CAPSULE OF STRENGTH 200 MG, UNK FREQUENCY
     Route: 048
     Dates: start: 2008, end: 20140909
  2. CELEBRA [Suspect]
     Active Substance: CELECOXIB
     Indication: SURGERY
  3. CELEBRA [Suspect]
     Active Substance: CELECOXIB
     Indication: SPINAL PAIN
  4. OSTEONUTRI [Concomitant]
     Indication: PROPHYLAXIS
     Dosage: 1 TABLET (UNSPECIFIED DOSE), 1X/DAY (AFTER LUNCH)
     Dates: start: 2004
  5. RIVOTRIL [Concomitant]
     Active Substance: CLONAZEPAM
     Indication: SLEEP DISORDER
     Dosage: 1 TABLET (UNSPECIFIED DOSE), 1X/DAY (AT NIGHT)
  6. LIPITOR [Concomitant]
     Active Substance: ATORVASTATIN CALCIUM
     Indication: BLOOD CHOLESTEROL
     Dosage: AT ONE TABLET (^20^, UNSPECIFIED UNIT) AFTER DINNER
     Dates: start: 2006
  7. OSTEONUTRI [Concomitant]
     Indication: OSTEOPOROSIS
  8. SERTRALINE [Concomitant]
     Active Substance: SERTRALINE HYDROCHLORIDE
     Indication: PAIN
     Dosage: 1 TABLET (UNSPECIFIED DOSE), 1X/DAY (AT NIGHT)
     Dates: start: 2011
  9. SERTRALINE [Concomitant]
     Active Substance: SERTRALINE HYDROCHLORIDE
     Indication: DEPRESSION
  10. INDAPAMIDE. [Concomitant]
     Active Substance: INDAPAMIDE
     Indication: DIURETIC THERAPY
     Dosage: 1 TABLET (UNSPECIFIED DOSE), DAILY (IN THE MORNING)
     Dates: start: 2013

REACTIONS (7)
  - Cardiac disorder [Unknown]
  - Blood cholesterol increased [Unknown]
  - Disease progression [Recovering/Resolving]
  - Fibromyalgia [Unknown]
  - Tendon rupture [Unknown]
  - Radiculitis [Unknown]
  - Hypertension [Unknown]

NARRATIVE: CASE EVENT DATE: 2012
